FAERS Safety Report 6219039-9 (Version None)
Quarter: 2009Q2

REPORT INFORMATION
  Report Type: 
  Country: None (occurrence: None)
  Receive Date: 20090608
  Receipt Date: 20090527
  Transmission Date: 20091009
  Serious: Yes (Congenital Anomaly)
  Sender: FDA-Public Use
  Company Number: HU-PFIZER INC-2009222370

PATIENT

DRUGS (4)
  1. XANAX [Suspect]
     Indication: PANIC DISORDER
     Dosage: 0.5 MG, ONCE DAILY AS NEEDED
     Route: 064
  2. XANAX [Suspect]
     Route: 048
  3. XANAX [Suspect]
     Indication: PANIC DISORDER
     Dosage: UNK
     Route: 064
  4. REXETIN [Suspect]
     Dosage: 20 MG, 1X/DAY
     Route: 064

REACTIONS (2)
  - DRUG EXPOSURE DURING PREGNANCY [None]
  - TRISOMY 21 [None]
